FAERS Safety Report 7462676-4 (Version None)
Quarter: 2011Q2

REPORT INFORMATION
  Report Type: 
  Country: None (occurrence: None)
  Receive Date: 20110506
  Receipt Date: 20110504
  Transmission Date: 20111010
  Serious: Yes (Death)
  Sender: FDA-Public Use
  Company Number: PHHY2011US37802

PATIENT
  Sex: Male

DRUGS (4)
  1. EXJADE [Suspect]
     Dosage: 2 DF, UNK
     Route: 048
  2. ETOPOSIDE [Concomitant]
  3. ATIVAN [Concomitant]
     Route: 048
  4. ZOFRAN [Concomitant]

REACTIONS (1)
  - DEATH [None]
